FAERS Safety Report 24967235 (Version 1)
Quarter: 2025Q1

REPORT INFORMATION
  Report Type: Spontaneous
  Country: US (occurrence: US)
  Receive Date: 20250213
  Receipt Date: 20250213
  Transmission Date: 20250409
  Serious: No
  Sender: ELI LILLY AND COMPANY
  Company Number: US-ELI_LILLY_AND_COMPANY-US202502009712

PATIENT
  Age: 72 Year
  Sex: Female

DRUGS (4)
  1. TRULICITY [Suspect]
     Active Substance: DULAGLUTIDE
     Indication: Type 2 diabetes mellitus
     Route: 058
     Dates: start: 2021
  2. TRULICITY [Suspect]
     Active Substance: DULAGLUTIDE
     Route: 058
     Dates: start: 2021
  3. TRULICITY [Suspect]
     Active Substance: DULAGLUTIDE
     Route: 058
     Dates: start: 2021
  4. TRULICITY [Suspect]
     Active Substance: DULAGLUTIDE
     Route: 058
     Dates: start: 2021

REACTIONS (1)
  - Injection site pain [Unknown]
